FAERS Safety Report 7056914-X (Version None)
Quarter: 2010Q4

REPORT INFORMATION
  Report Type: 
  Country: None (occurrence: None)
  Receive Date: 20101022
  Receipt Date: 20101012
  Transmission Date: 20110411
  Serious: Yes (Other)
  Sender: FDA-Public Use
  Company Number: US-JNJFOC-20101003973

PATIENT
  Sex: Male
  Weight: 88.45 kg

DRUGS (3)
  1. LEVAQUIN [Suspect]
     Indication: SINUSITIS
     Route: 048
     Dates: start: 20100701, end: 20100707
  2. ULORIC [Concomitant]
     Indication: GOUT
     Route: 048
  3. COLCHICINE [Concomitant]
     Indication: GOUT
     Route: 048

REACTIONS (4)
  - JOINT EFFUSION [None]
  - TENDON DISORDER [None]
  - TENDON PAIN [None]
  - TENDON RUPTURE [None]
